FAERS Safety Report 13496340 (Version 2)
Quarter: 2017Q2

REPORT INFORMATION
  Report Type: Spontaneous
  Country: US (occurrence: US)
  Receive Date: 20170428
  Receipt Date: 20170428
  Transmission Date: 20170830
  Serious: No
  Sender: FDA-Public Use
  Company Number: US-JAZZ-2017-US-003065

PATIENT
  Sex: Male

DRUGS (12)
  1. PROVIGIL [Concomitant]
     Active Substance: MODAFINIL
  2. CLARITIN [Concomitant]
     Active Substance: LORATADINE
  3. DAYTRANA [Concomitant]
     Active Substance: METHYLPHENIDATE
  4. XYREM [Suspect]
     Active Substance: SODIUM OXYBATE
     Indication: NARCOLEPSY
     Dosage: 1.5G, BID
     Route: 048
     Dates: start: 201507, end: 2015
  5. XYREM [Suspect]
     Active Substance: SODIUM OXYBATE
     Dosage: 4.5G, BID
     Route: 048
     Dates: start: 201608
  6. CYPROHEPTADINE. [Concomitant]
     Active Substance: CYPROHEPTADINE
  7. ADDERALL [Concomitant]
     Active Substance: AMPHETAMINE ASPARTATE\AMPHETAMINE SULFATE\DEXTROAMPHETAMINE SACCHARATE\DEXTROAMPHETAMINE SULFATE
  8. VENLAFAXINE HCL [Concomitant]
     Active Substance: VENLAFAXINE HYDROCHLORIDE
  9. EFFEXOR [Concomitant]
     Active Substance: VENLAFAXINE HYDROCHLORIDE
  10. XYREM [Suspect]
     Active Substance: SODIUM OXYBATE
     Indication: CATAPLEXY
     Dosage: DOSE ADJUSTMENT
     Route: 048
     Dates: start: 2015, end: 2016
  11. CHILDRENS TYLENOL [Concomitant]
     Active Substance: ACETAMINOPHEN
  12. ZYRTEC [Concomitant]
     Active Substance: CETIRIZINE HYDROCHLORIDE

REACTIONS (5)
  - Insomnia [Unknown]
  - Cough [Unknown]
  - Pyrexia [Unknown]
  - Influenza [Not Recovered/Not Resolved]
  - Vomiting [Unknown]
